FAERS Safety Report 16422605 (Version 1)
Quarter: 2019Q2

REPORT INFORMATION
  Report Type: Report from Study
  Country: US (occurrence: US)
  Receive Date: 20190612
  Receipt Date: 20190612
  Transmission Date: 20190711
  Serious: Yes (Other)
  Sender: FDA-Public Use
  Company Number: PHEH2019US024066

PATIENT
  Sex: Female

DRUGS (1)
  1. GILENYA [Suspect]
     Active Substance: FINGOLIMOD HYDROCHLORIDE
     Indication: MULTIPLE SCLEROSIS
     Dosage: 0.5 MG, QD
     Route: 048
     Dates: start: 20171127, end: 201903

REACTIONS (4)
  - Herpes zoster oticus [Recovering/Resolving]
  - Herpes zoster [Recovering/Resolving]
  - Facial paralysis [Recovering/Resolving]
  - White blood cell count decreased [Recovering/Resolving]
